FAERS Safety Report 6082158-4 (Version None)
Quarter: 2009Q1

REPORT INFORMATION
  Report Type: 
  Country: None (occurrence: None)
  Receive Date: 20090218
  Receipt Date: 20090213
  Transmission Date: 20090719
  Serious: Yes (Hospitalization)
  Sender: FDA-Public Use
  Company Number: A0729283A

PATIENT
  Age: 65 Year
  Sex: Female
  Weight: 59.1 kg

DRUGS (3)
  1. AVANDIA [Suspect]
     Route: 048
     Dates: start: 19990601, end: 20070701
  2. GLUCOPHAGE [Concomitant]
     Dates: start: 19990601, end: 19990601
  3. METOPROLOL TARTRATE [Concomitant]
     Dates: start: 20060201

REACTIONS (1)
  - MYOCARDIAL INFARCTION [None]
